FAERS Safety Report 21822375 (Version 1)
Quarter: 2023Q1

REPORT INFORMATION
  Report Type: Spontaneous
  Country: CA (occurrence: CA)
  Receive Date: 20230105
  Receipt Date: 20230105
  Transmission Date: 20230417
  Serious: Yes (Hospitalization)
  Sender: FDA-Public Use
  Company Number: None

PATIENT
  Age: 81 Year
  Sex: Male

DRUGS (2)
  1. APIXABAN [Suspect]
     Active Substance: APIXABAN
     Indication: Product used for unknown indication
  2. PHENYTOIN [Suspect]
     Active Substance: PHENYTOIN
     Indication: Product used for unknown indication
     Route: 065

REACTIONS (2)
  - Drug interaction [Unknown]
  - Pulmonary embolism [Unknown]
